FAERS Safety Report 11969145 (Version 1)
Quarter: 2016Q1

REPORT INFORMATION
  Report Type: Report from Study
  Country: US (occurrence: US)
  Receive Date: 20160128
  Receipt Date: 20160128
  Transmission Date: 20160526
  Serious: No
  Sender: FDA-Public Use
  Company Number: PHEH2015US004584

PATIENT
  Age: 21 Year
  Sex: Female

DRUGS (1)
  1. NILOTINIB [Suspect]
     Active Substance: NILOTINIB
     Indication: CHRONIC MYELOID LEUKAEMIA
     Dosage: 300 MG, BID
     Route: 048
     Dates: start: 201302

REACTIONS (6)
  - Muscle spasms [Unknown]
  - Weight increased [Unknown]
  - Pain in extremity [Recovering/Resolving]
  - Rash [Unknown]
  - Pain [Unknown]
  - Fatigue [Unknown]
